FAERS Safety Report 5239237-0 (Version None)
Quarter: 2007Q1

REPORT INFORMATION
  Report Type: 
  Country: None (occurrence: None)
  Receive Date: 20061208
  Receipt Date: 20050613
  Transmission Date: 20070707
  Serious: Yes (Other)
  Sender: FDA-Public Use
  Company Number: 2005UW09063

PATIENT
  Age: 66 Year
  Sex: Male
  Weight: 112.49 kg

DRUGS (2)
  1. CRESTOR [Suspect]
     Indication: BLOOD CHOLESTEROL INCREASED
     Dosage: 5 MG PO
     Route: 048
     Dates: start: 20050401, end: 20050101
  2. TENORMIN [Concomitant]

REACTIONS (2)
  - MYALGIA [None]
  - URINE ABNORMALITY [None]
